FAERS Safety Report 24688959 (Version 2)
Quarter: 2025Q2

REPORT INFORMATION
  Report Type: Spontaneous
  Country: CA (occurrence: CA)
  Receive Date: 20241203
  Receipt Date: 20250612
  Transmission Date: 20250716
  Serious: Yes (Death, Life-Threatening, Hospitalization, Disabling, Congenital Anomaly, Other)
  Sender: Haleon PLC
  Company Number: CA-NOVNCHHQ-PHHY2018CA168554

PATIENT
  Age: 43 Year
  Sex: Female
  Weight: 68 kg

DRUGS (147)
  1. VOLTAREN [Suspect]
     Active Substance: DICLOFENAC SODIUM
     Indication: Product used for unknown indication
  2. ALENDRONIC ACID [Suspect]
     Active Substance: ALENDRONIC ACID
     Indication: Rheumatoid arthritis
     Route: 048
  3. ALENDRONIC ACID [Suspect]
     Active Substance: ALENDRONIC ACID
  4. ALENDRONIC ACID [Suspect]
     Active Substance: ALENDRONIC ACID
     Route: 048
  5. ALENDRONIC ACID [Suspect]
     Active Substance: ALENDRONIC ACID
     Route: 016
  6. ALENDRONIC ACID [Suspect]
     Active Substance: ALENDRONIC ACID
     Route: 005
  7. RITUXIMAB [Suspect]
     Active Substance: RITUXIMAB
     Indication: Rheumatoid arthritis
  8. RITUXIMAB [Suspect]
     Active Substance: RITUXIMAB
  9. RITUXIMAB [Suspect]
     Active Substance: RITUXIMAB
  10. RITUXIMAB [Suspect]
     Active Substance: RITUXIMAB
  11. RITUXIMAB [Suspect]
     Active Substance: RITUXIMAB
  12. RITUXIMAB [Suspect]
     Active Substance: RITUXIMAB
  13. RITUXIMAB [Suspect]
     Active Substance: RITUXIMAB
     Route: 042
  14. RITUXIMAB [Suspect]
     Active Substance: RITUXIMAB
  15. RITUXIMAB [Suspect]
     Active Substance: RITUXIMAB
     Route: 058
  16. RITUXIMAB [Suspect]
     Active Substance: RITUXIMAB
     Route: 016
  17. HYDROCORTISONE [Suspect]
     Active Substance: HYDROCORTISONE
     Indication: Rheumatoid arthritis
  18. NAPROXEN [Suspect]
     Active Substance: NAPROXEN
     Indication: Product used for unknown indication
     Dosage: 2 DOSAGE FORM, Q12H
  19. NAPROXEN [Suspect]
     Active Substance: NAPROXEN
  20. FOLIC ACID [Suspect]
     Active Substance: FOLIC ACID
     Indication: Rheumatoid arthritis
  21. FOLIC ACID [Suspect]
     Active Substance: FOLIC ACID
     Route: 048
  22. FOLIC ACID [Suspect]
     Active Substance: FOLIC ACID
  23. FOLIC ACID [Suspect]
     Active Substance: FOLIC ACID
  24. FOLIC ACID [Suspect]
     Active Substance: FOLIC ACID
  25. FOLIC ACID [Suspect]
     Active Substance: FOLIC ACID
     Route: 048
  26. FOLIC ACID [Suspect]
     Active Substance: FOLIC ACID
  27. FOLIC ACID [Suspect]
     Active Substance: FOLIC ACID
     Route: 048
  28. FOLIC ACID [Suspect]
     Active Substance: FOLIC ACID
  29. FOLIC ACID [Suspect]
     Active Substance: FOLIC ACID
  30. FOLIC ACID [Suspect]
     Active Substance: FOLIC ACID
     Route: 048
  31. FOLIC ACID [Suspect]
     Active Substance: FOLIC ACID
     Route: 058
  32. FOLIC ACID [Suspect]
     Active Substance: FOLIC ACID
  33. FOLIC ACID [Suspect]
     Active Substance: FOLIC ACID
     Route: 048
  34. FOLIC ACID [Suspect]
     Active Substance: FOLIC ACID
     Route: 048
  35. FOLIC ACID [Suspect]
     Active Substance: FOLIC ACID
  36. FOLIC ACID [Suspect]
     Active Substance: FOLIC ACID
  37. FOLIC ACID [Suspect]
     Active Substance: FOLIC ACID
  38. FOLIC ACID [Suspect]
     Active Substance: FOLIC ACID
  39. FOLIC ACID [Suspect]
     Active Substance: FOLIC ACID
     Route: 048
  40. FOLIC ACID [Suspect]
     Active Substance: FOLIC ACID
     Route: 048
  41. FOLIC ACID [Suspect]
     Active Substance: FOLIC ACID
  42. FOLIC ACID [Suspect]
     Active Substance: FOLIC ACID
     Dosage: 5 MG, Q24H ((1 EVERY 24 HOURS)
  43. LEFLUNOMIDE [Suspect]
     Active Substance: LEFLUNOMIDE
     Indication: Rheumatoid arthritis
     Route: 048
  44. LEFLUNOMIDE [Suspect]
     Active Substance: LEFLUNOMIDE
  45. LEFLUNOMIDE [Suspect]
     Active Substance: LEFLUNOMIDE
  46. LEFLUNOMIDE [Suspect]
     Active Substance: LEFLUNOMIDE
  47. LEFLUNOMIDE [Suspect]
     Active Substance: LEFLUNOMIDE
     Route: 048
  48. LEFLUNOMIDE [Suspect]
     Active Substance: LEFLUNOMIDE
     Route: 048
  49. LEFLUNOMIDE [Suspect]
     Active Substance: LEFLUNOMIDE
  50. DOMPERIDONE [Suspect]
     Active Substance: DOMPERIDONE
     Indication: Product used for unknown indication
  51. QUETIAPINE FUMARATE [Suspect]
     Active Substance: QUETIAPINE FUMARATE
     Indication: Product used for unknown indication
  52. QUETIAPINE FUMARATE [Suspect]
     Active Substance: QUETIAPINE FUMARATE
     Route: 048
  53. PANTOPRAZOLE SODIUM [Suspect]
     Active Substance: PANTOPRAZOLE SODIUM
     Indication: Product used for unknown indication
  54. PANTOPRAZOLE SODIUM [Suspect]
     Active Substance: PANTOPRAZOLE SODIUM
  55. PANTOPRAZOLE [Suspect]
     Active Substance: PANTOPRAZOLE
     Indication: Dyspepsia
     Route: 005
  56. PANTOPRAZOLE [Suspect]
     Active Substance: PANTOPRAZOLE
  57. METHOTREXATE [Suspect]
     Active Substance: METHOTREXATE
     Indication: Rheumatoid arthritis
     Route: 048
  58. METHOTREXATE [Suspect]
     Active Substance: METHOTREXATE
     Route: 013
  59. METHOTREXATE [Suspect]
     Active Substance: METHOTREXATE
  60. METHOTREXATE [Suspect]
     Active Substance: METHOTREXATE
     Route: 048
  61. METHOTREXATE [Suspect]
     Active Substance: METHOTREXATE
     Route: 058
  62. METHOTREXATE [Suspect]
     Active Substance: METHOTREXATE
     Dosage: 20 MG, WE
     Route: 048
  63. METHOTREXATE [Suspect]
     Active Substance: METHOTREXATE
     Dosage: 20 MG, QD
     Route: 048
  64. METHOTREXATE [Suspect]
     Active Substance: METHOTREXATE
  65. METHOTREXATE [Suspect]
     Active Substance: METHOTREXATE
     Dosage: 25 MG, QW
     Route: 048
  66. METHOTREXATE [Suspect]
     Active Substance: METHOTREXATE
     Route: 048
  67. METHOTREXATE [Suspect]
     Active Substance: METHOTREXATE
     Dosage: 25 MG, QW
     Route: 013
  68. METHOTREXATE [Suspect]
     Active Substance: METHOTREXATE
     Dosage: 1 G, BID
     Route: 048
  69. METHOTREXATE [Suspect]
     Active Substance: METHOTREXATE
     Route: 016
  70. METHOTREXATE [Suspect]
     Active Substance: METHOTREXATE
     Dosage: 25 MG, BID
     Route: 048
  71. METHOTREXATE [Suspect]
     Active Substance: METHOTREXATE
     Route: 048
  72. TOPIRAMATE [Suspect]
     Active Substance: TOPIRAMATE
     Indication: Product used for unknown indication
     Dosage: 3 MG, QD
  73. TOPIRAMATE [Suspect]
     Active Substance: TOPIRAMATE
     Dosage: 1 MG, QD
  74. MYCOPHENOLATE MOFETIL [Suspect]
     Active Substance: MYCOPHENOLATE MOFETIL
     Indication: Product used for unknown indication
  75. CANDESARTAN [Suspect]
     Active Substance: CANDESARTAN
     Indication: Migraine
     Route: 048
  76. TRAZODONE [Suspect]
     Active Substance: TRAZODONE HYDROCHLORIDE
     Indication: Product used for unknown indication
     Dosage: 2 DOSAGE FORM, QD
  77. METHOTREXATE [Suspect]
     Active Substance: METHOTREXATE
     Indication: Psoriatic arthropathy
     Dosage: ROUTE OF ADMINISTRATION INTRA-ARTERIAL
  78. METHOTREXATE [Suspect]
     Active Substance: METHOTREXATE
     Indication: Rheumatoid arthritis
  79. METHOTREXATE [Suspect]
     Active Substance: METHOTREXATE
     Dosage: 25 MG, QD ROUTE OF ADMINISTRATION INTRAVENOUS (NOT OTHERWISE SPECIFIED)
  80. METHOTREXATE [Suspect]
     Active Substance: METHOTREXATE
     Dosage: 25 MG, Q24H ROUTE OF ADMINISTRATION INTRA-ARTERIAL
  81. METHOTREXATE [Suspect]
     Active Substance: METHOTREXATE
  82. METHOTREXATE [Suspect]
     Active Substance: METHOTREXATE
     Dosage: 25 MG, QW ROUTE OF ADMINISTRATION INTRA-ARTERIAL
  83. METHOTREXATE [Suspect]
     Active Substance: METHOTREXATE
     Dosage: 20 MG, Q24H ROUTE OF ADMINISTRATION ORAL
  84. METHOTREXATE [Suspect]
     Active Substance: METHOTREXATE
     Dosage: 20 MG, QD
  85. METHOTREXATE [Suspect]
     Active Substance: METHOTREXATE
     Dosage: 25 MG, QW ROUTE OF ADMINISTRATION INTRA-ARTERIAL
  86. METHOTREXATE [Suspect]
     Active Substance: METHOTREXATE
  87. METHOTREXATE [Suspect]
     Active Substance: METHOTREXATE
     Dosage: 2 DOSAGE FORM, Q24H
  88. METHOTREXATE [Suspect]
     Active Substance: METHOTREXATE
     Dosage: 1 DOSAGE FORM, QD ROUTE OF ADMINISTRATION ORAL
  89. METHOTREXATE [Suspect]
     Active Substance: METHOTREXATE
  90. METHOTREXATE [Suspect]
     Active Substance: METHOTREXATE
     Dosage: 25 MG, QW ROUTE OF ADMINISTRATION ORAL
  91. METHOTREXATE [Suspect]
     Active Substance: METHOTREXATE
     Dosage: ROUTE OF ADMINISTRATION ORAL
  92. METHOTREXATE [Suspect]
     Active Substance: METHOTREXATE
  93. METHOTREXATE [Suspect]
     Active Substance: METHOTREXATE
     Dosage: 15 MG, Q24H
  94. METHOTREXATE [Suspect]
     Active Substance: METHOTREXATE
     Dosage: 1 G, Q24H ROUTE OF ADMINISTRATION ORAL
  95. METHOTREXATE [Suspect]
     Active Substance: METHOTREXATE
     Dosage: 1 G, Q12H ROUTE OF ADMINISTRATION ORAL
  96. METHOTREXATE [Suspect]
     Active Substance: METHOTREXATE
  97. METHOTREXATE [Suspect]
     Active Substance: METHOTREXATE
     Dosage: 20 MG, QW  ROUTE OF ADMINISTRATION ORAL
  98. METHOTREXATE [Suspect]
     Active Substance: METHOTREXATE
     Dosage: 20 MG, QW  ROUTE OF ADMINISTRATION INTRA-ARTERIAL
     Route: 013
  99. METHOTREXATE [Suspect]
     Active Substance: METHOTREXATE
     Route: 014
  100. METHOTREXATE [Suspect]
     Active Substance: METHOTREXATE
     Dosage: 20 MG, Q24H ROUTE OF ADMINISTRATION ORAL
     Route: 048
  101. METHOTREXATE [Suspect]
     Active Substance: METHOTREXATE
     Dosage: 15 MG, QW ROUTE OF ADMINISTRATION ORAL
     Route: 048
  102. METHOTREXATE [Suspect]
     Active Substance: METHOTREXATE
  103. METHOTREXATE [Suspect]
     Active Substance: METHOTREXATE
     Dosage: 25 MG, QW ROUTE OF ADMINISTRATION SUBCUTANEOUS
     Route: 058
  104. METHOTREXATE [Suspect]
     Active Substance: METHOTREXATE
     Dosage: 20 MG, Q24H
  105. METHOTREXATE [Suspect]
     Active Substance: METHOTREXATE
  106. METHOTREXATE [Suspect]
     Active Substance: METHOTREXATE
     Dosage: 25 MG, Q24H ROUTE OF ADMINISTRATION ORAL
     Route: 048
  107. METHOTREXATE [Suspect]
     Active Substance: METHOTREXATE
     Dosage: 1 DOSAGE FORM, Q24H  ROUTE OF ADMINISTRATION ORAL
  108. METHOTREXATE [Suspect]
     Active Substance: METHOTREXATE
     Dosage: 20 MG, QW
  109. METHOTREXATE [Suspect]
     Active Substance: METHOTREXATE
  110. METHOTREXATE [Suspect]
     Active Substance: METHOTREXATE
  111. ERELZI [Suspect]
     Active Substance: ETANERCEPT-SZZS
     Indication: Rheumatoid arthritis
     Dosage: 5 MG, QW (1 EVERY 1 WEEK)
  112. ERELZI [Suspect]
     Active Substance: ETANERCEPT-SZZS
     Route: 058
  113. ERELZI [Suspect]
     Active Substance: ETANERCEPT-SZZS
  114. OXYCODONE HYDROCHLORIDE [Suspect]
     Active Substance: OXYCODONE HYDROCHLORIDE
     Indication: Product used for unknown indication
  115. OXYCODONE HYDROCHLORIDE [Suspect]
     Active Substance: OXYCODONE HYDROCHLORIDE
  116. ADALIMUMAB [Suspect]
     Active Substance: ADALIMUMAB
     Indication: Rheumatoid arthritis
  117. ADALIMUMAB [Suspect]
     Active Substance: ADALIMUMAB
     Route: 058
  118. ADALIMUMAB [Suspect]
     Active Substance: ADALIMUMAB
  119. ADALIMUMAB [Suspect]
     Active Substance: ADALIMUMAB
     Route: 058
  120. ADALIMUMAB [Suspect]
     Active Substance: ADALIMUMAB
     Route: 058
  121. DICLOFENAC POTASSIUM [Suspect]
     Active Substance: DICLOFENAC POTASSIUM
     Indication: Product used for unknown indication
  122. COSENTYX [Suspect]
     Active Substance: SECUKINUMAB
     Indication: Psoriatic arthropathy
  123. COSENTYX [Suspect]
     Active Substance: SECUKINUMAB
     Indication: Rheumatoid arthritis
  124. COSENTYX [Suspect]
     Active Substance: SECUKINUMAB
  125. COSENTYX [Suspect]
     Active Substance: SECUKINUMAB
     Route: 005
  126. COSENTYX [Suspect]
     Active Substance: SECUKINUMAB
  127. DICLOFENAC SODIUM [Suspect]
     Active Substance: DICLOFENAC SODIUM
     Indication: Product used for unknown indication
  128. DICLOFENAC SODIUM [Suspect]
     Active Substance: DICLOFENAC SODIUM
  129. DICLOFENAC SODIUM [Suspect]
     Active Substance: DICLOFENAC SODIUM
  130. DICLOFENAC SODIUM [Suspect]
     Active Substance: DICLOFENAC SODIUM
  131. AIMOVIG [Suspect]
     Active Substance: ERENUMAB-AOOE
     Indication: Migraine
  132. CETIRIZINE [Suspect]
     Active Substance: CETIRIZINE HYDROCHLORIDE
     Indication: Product used for unknown indication
     Dosage: 1 DOSAGE FORM, QD
  133. CETIRIZINE [Suspect]
     Active Substance: CETIRIZINE HYDROCHLORIDE
  134. COSENTYX [Suspect]
     Active Substance: SECUKINUMAB
     Indication: Psoriatic arthropathy
     Route: 005
  135. COSENTYX [Suspect]
     Active Substance: SECUKINUMAB
     Indication: Rheumatoid arthritis
  136. COSENTYX [Suspect]
     Active Substance: SECUKINUMAB
  137. TOPICORT [Suspect]
     Active Substance: DESOXIMETASONE
     Indication: Product used for unknown indication
     Dosage: 25 MG, Q12H
  138. TOPICORT [Suspect]
     Active Substance: DESOXIMETASONE
  139. TOPICORT [Suspect]
     Active Substance: DESOXIMETASONE
     Dosage: 3 MG, QD
  140. TOPICORT [Suspect]
     Active Substance: DESOXIMETASONE
     Dosage: 1 DOSAGE FORM, Q12H
  141. DOMPERIDONE MALEATE [Suspect]
     Active Substance: DOMPERIDONE MALEATE
     Indication: Product used for unknown indication
     Dosage: 1 DOSAGE FORM, QD
  142. LAMICTAL [Suspect]
     Active Substance: LAMOTRIGINE
     Indication: Product used for unknown indication
     Dosage: 50 MG, Q12H
     Route: 048
  143. ALENDRONATE SODIUM [Suspect]
     Active Substance: ALENDRONATE SODIUM
     Indication: Rheumatoid arthritis
  144. ALENDRONATE SODIUM [Suspect]
     Active Substance: ALENDRONATE SODIUM
     Route: 048
  145. ALENDRONATE SODIUM [Suspect]
     Active Substance: ALENDRONATE SODIUM
     Route: 016
  146. ALENDRONATE SODIUM [Suspect]
     Active Substance: ALENDRONATE SODIUM
     Route: 005
  147. ALENDRONATE SODIUM [Suspect]
     Active Substance: ALENDRONATE SODIUM
     Route: 048

REACTIONS (30)
  - Type 2 diabetes mellitus [Fatal]
  - General physical health deterioration [Fatal]
  - Wound [Fatal]
  - Depression [Fatal]
  - Joint range of motion decreased [Fatal]
  - Glossodynia [Fatal]
  - Vomiting [Fatal]
  - Breast cancer stage III [Fatal]
  - Abdominal discomfort [Fatal]
  - Fibromyalgia [Fatal]
  - Intentional product use issue [Fatal]
  - Diarrhoea [Fatal]
  - Helicobacter infection [Fatal]
  - Hand deformity [Fatal]
  - Rash [Fatal]
  - Pericarditis [Fatal]
  - Wound infection [Fatal]
  - Synovitis [Fatal]
  - Alopecia [Fatal]
  - Drug intolerance [Fatal]
  - Anti-cyclic citrullinated peptide antibody positive [Fatal]
  - Systemic lupus erythematosus [Fatal]
  - Blister [Fatal]
  - Duodenal ulcer perforation [Fatal]
  - Arthralgia [Fatal]
  - Live birth [Fatal]
  - Swelling [Fatal]
  - Maternal exposure during pregnancy [Fatal]
  - Wheezing [Fatal]
  - Pemphigus [Fatal]
